FAERS Safety Report 19173405 (Version 1)
Quarter: 2021Q2

REPORT INFORMATION
  Report Type: Spontaneous
  Country: US (occurrence: US)
  Receive Date: 20210423
  Receipt Date: 20210423
  Transmission Date: 20210717
  Serious: No
  Sender: FDA-Public Use
  Company Number: None

PATIENT
  Age: 64 Year
  Sex: Male

DRUGS (1)
  1. ABIRATERONE (ABIRATERONE ACETATE) [Suspect]
     Active Substance: ABIRATERONE ACETATE
     Route: 046
     Dates: start: 20201028

REACTIONS (1)
  - Emergency care [None]

NARRATIVE: CASE EVENT DATE: 20210423
